FAERS Safety Report 7058480-1 (Version None)
Quarter: 2010Q4

REPORT INFORMATION
  Report Type: 
  Country: None (occurrence: None)
  Receive Date: 20101022
  Receipt Date: 20101014
  Transmission Date: 20110411
  Serious: Yes (Hospitalization)
  Sender: FDA-Public Use
  Company Number: JP-ABBOTT-10P-087-0676538-00

PATIENT
  Sex: Male
  Weight: 64 kg

DRUGS (25)
  1. HUMIRA [Suspect]
     Indication: COLITIS ULCERATIVE
     Route: 058
     Dates: start: 20090610
  2. PENTASA [Concomitant]
     Indication: COLITIS ULCERATIVE
     Route: 048
     Dates: start: 20080723, end: 20090325
  3. PENTASA [Concomitant]
     Route: 048
     Dates: start: 20090325
  4. LAC B [Concomitant]
     Indication: COLITIS ULCERATIVE
     Route: 048
     Dates: start: 20070726
  5. PREDNISOLONE [Concomitant]
     Indication: COLITIS ULCERATIVE
     Dosage: DOSE TITRATION
     Route: 048
     Dates: start: 20091029, end: 20100203
  6. PREDNISOLONE [Concomitant]
     Route: 048
     Dates: start: 20100609, end: 20100929
  7. PREDNISOLONE [Concomitant]
     Route: 048
     Dates: start: 20100929, end: 20100929
  8. PREDNISOLONE [Concomitant]
     Route: 048
     Dates: start: 20100930
  9. PREDNISOLONE [Concomitant]
     Route: 048
     Dates: start: 20101012
  10. GASTER D [Concomitant]
     Indication: GASTRITIS
     Route: 048
     Dates: start: 20070808
  11. MUCOSTA [Concomitant]
     Indication: GASTRITIS
     Route: 048
     Dates: start: 20090513
  12. LOXONIN [Concomitant]
     Indication: HEADACHE
     Route: 048
  13. SPEEL PLASTER [Concomitant]
     Indication: SKIN PAPILLOMA
     Dosage: ADEQUATE DOSE
     Route: 061
     Dates: start: 20090930, end: 20100302
  14. PERIACTIN [Concomitant]
     Indication: COUGH
     Route: 048
     Dates: start: 20101001, end: 20101005
  15. NICHICODE [Concomitant]
     Indication: COUGH
     Route: 048
     Dates: start: 20101001, end: 20101005
  16. MUCODYNE [Concomitant]
     Indication: COUGH
     Dates: start: 20101001, end: 20101005
  17. ALDIOXA [Concomitant]
     Indication: COUGH
     Route: 048
     Dates: start: 20101001, end: 20101005
  18. CIPROFLOXACIN HCL [Concomitant]
     Indication: PRODUCT USED FOR UNKNOWN INDICATION
     Route: 048
     Dates: start: 20100922, end: 20100930
  19. CIPROFLOXACIN HCL [Concomitant]
     Route: 048
     Dates: start: 20101003, end: 20101010
  20. CRAVIT [Concomitant]
     Indication: PRODUCT USED FOR UNKNOWN INDICATION
     Route: 048
     Dates: start: 20100916, end: 20100923
  21. LACTEC G [Concomitant]
     Indication: PRODUCT USED FOR UNKNOWN INDICATION
     Route: 042
     Dates: start: 20100927, end: 20100928
  22. LACTEC G [Concomitant]
     Route: 042
     Dates: start: 20101003, end: 20101005
  23. LACTEC G [Concomitant]
     Route: 042
     Dates: start: 20101006, end: 20101006
  24. LACTEC G [Concomitant]
     Route: 042
     Dates: start: 20101007, end: 20101008
  25. FLUMETHOLON [Concomitant]
     Indication: PRODUCT USED FOR UNKNOWN INDICATION
     Dosage: ADEQUATE DOSE AS REQUIRED
     Route: 047
     Dates: start: 20100918, end: 20100922

REACTIONS (1)
  - PYREXIA [None]
